FAERS Safety Report 9549593 (Version 2)
Quarter: 2014Q2

REPORT INFORMATION
  Report Type: Spontaneous
  Country: US (occurrence: US)
  Receive Date: 20130924
  Receipt Date: 20140402
  Transmission Date: 20141212
  Serious: Yes (Hospitalization)
  Sender: FDA-Public Use
  Company Number: US-B.I. PHARMACEUTICALS,INC./RIDGEFIELD-2013-BI-29467BP

PATIENT
  Sex: Male
  Weight: 141.97 kg

DRUGS (9)
  1. PRADAXA [Suspect]
     Indication: ATRIAL FLUTTER
     Dosage: 300 MG
     Route: 065
     Dates: start: 201111, end: 20120514
  2. PRADAXA [Suspect]
     Dosage: 150 MG
     Route: 065
     Dates: start: 20120515
  3. AMIODARONE [Concomitant]
     Route: 065
  4. DILTIAZEM [Concomitant]
     Route: 065
  5. LEVOTHROID [Concomitant]
     Route: 065
  6. NIASPAN [Concomitant]
     Route: 065
  7. POTASSIUM [Concomitant]
     Route: 065
  8. ALPRAZOLAM [Concomitant]
     Route: 065
  9. LASIX [Concomitant]
     Route: 065

REACTIONS (2)
  - Pericardial haemorrhage [Unknown]
  - Cardiac failure congestive [Unknown]
